FAERS Safety Report 19493268 (Version 1)
Quarter: 2021Q3

REPORT INFORMATION
  Report Type: Spontaneous
  Country: FR (occurrence: FR)
  Receive Date: 20210705
  Receipt Date: 20210705
  Transmission Date: 20211014
  Serious: Yes (Hospitalization)
  Sender: FDA-Public Use
  Company Number: FR-ROCHE-2860338

PATIENT
  Age: 77 Year
  Sex: Female
  Weight: 100 kg

DRUGS (1)
  1. ROACTEMRA [Suspect]
     Active Substance: TOCILIZUMAB
     Indication: RHEUMATOID ARTHRITIS
     Route: 058
     Dates: start: 20210514, end: 20210601

REACTIONS (2)
  - Agranulocytosis [Recovered/Resolved]
  - Neutropenia [Recovering/Resolving]

NARRATIVE: CASE EVENT DATE: 20210601
